FAERS Safety Report 11189850 (Version 1)
Quarter: 2015Q2

REPORT INFORMATION
  Report Type: Spontaneous
  Country: US (occurrence: US)
  Receive Date: 20150615
  Receipt Date: 20150615
  Transmission Date: 20150821
  Serious: No
  Sender: FDA-Public Use
  Company Number: US-PFIZER INC-2015196606

PATIENT
  Age: 76 Year
  Sex: Female
  Weight: 73 kg

DRUGS (3)
  1. ARTHROTEC [Suspect]
     Active Substance: DICLOFENAC SODIUM\MISOPROSTOL
     Indication: ARTHRITIS
     Dosage: 50 MG, 3X/DAY
  2. VOLTAREN [Suspect]
     Active Substance: DICLOFENAC SODIUM
     Dosage: UNK
  3. CYTOTEC [Suspect]
     Active Substance: MISOPROSTOL
     Dosage: UNK

REACTIONS (2)
  - Weight decreased [Unknown]
  - Dyspepsia [Unknown]
